FAERS Safety Report 14591336 (Version 2)
Quarter: 2018Q1

REPORT INFORMATION
  Report Type: Spontaneous
  Country: FR (occurrence: FR)
  Receive Date: 20180302
  Receipt Date: 20180308
  Transmission Date: 20180509
  Serious: Yes (Hospitalization)
  Sender: FDA-Public Use
  Company Number: FR-ASTRAZENECA-2018SE23620

PATIENT
  Age: 52 Year
  Sex: Female

DRUGS (7)
  1. ESOMEPRAZOLE MAGNESIUM. [Suspect]
     Active Substance: ESOMEPRAZOLE MAGNESIUM
     Indication: PROPHYLAXIS AGAINST GASTROINTESTINAL ULCER
     Route: 048
     Dates: start: 20171221, end: 20171225
  2. SURGAM [Suspect]
     Active Substance: TIAPROFENIC ACID
     Indication: PAIN
     Route: 048
     Dates: start: 20171221, end: 20171224
  3. DICLOFENAC [Concomitant]
     Active Substance: DICLOFENAC
     Route: 061
  4. PARACETAMOL [Concomitant]
     Active Substance: ACETAMINOPHEN
     Route: 048
  5. ESOMEPRAZOLE [Suspect]
     Active Substance: ESOMEPRAZOLE
     Indication: PROPHYLAXIS AGAINST GASTROINTESTINAL ULCER
     Route: 048
     Dates: start: 20171221, end: 20171225
  6. HELICIDINE [Concomitant]
     Active Substance: ESCARGOT
     Route: 048
  7. JOSACINE [Suspect]
     Active Substance: JOSAMYCIN
     Indication: INFECTION
     Route: 048
     Dates: start: 20171221, end: 20171225

REACTIONS (3)
  - Diplopia [Recovered/Resolved]
  - Balance disorder [Recovered/Resolved]
  - Vomiting [Recovered/Resolved]

NARRATIVE: CASE EVENT DATE: 201712
